FAERS Safety Report 13540180 (Version 1)
Quarter: 2017Q2

REPORT INFORMATION
  Report Type: Spontaneous
  Country: BE (occurrence: BE)
  Receive Date: 20170512
  Receipt Date: 20170512
  Transmission Date: 20170830
  Serious: Yes (Other)
  Sender: FDA-Public Use
  Company Number: BE-AMGEN-BELSP2017071259

PATIENT
  Age: 47 Year
  Sex: Male
  Weight: 35 kg

DRUGS (1)
  1. ENBREL [Suspect]
     Active Substance: ETANERCEPT
     Indication: PRODUCT USED FOR UNKNOWN INDICATION
     Dosage: UNK
     Route: 058
     Dates: start: 201610, end: 20170430

REACTIONS (4)
  - Abnormal loss of weight [Unknown]
  - Muscle atrophy [Unknown]
  - Inflammation [Unknown]
  - Tuberculosis [Unknown]
